FAERS Safety Report 20045127 (Version 2)
Quarter: 2022Q4

REPORT INFORMATION
  Report Type: Spontaneous
  Country: US (occurrence: US)
  Receive Date: 20211108
  Receipt Date: 20221010
  Transmission Date: 20230112
  Serious: Yes (Hospitalization, Other)
  Sender: FDA-Public Use
  Company Number: US-SUNOVION-2021SUN004234

PATIENT
  Sex: Male

DRUGS (5)
  1. APTIOM [Suspect]
     Active Substance: ESLICARBAZEPINE ACETATE
     Indication: Seizure
     Dosage: 1600 MG, QD
     Route: 048
  2. APTIOM [Suspect]
     Active Substance: ESLICARBAZEPINE ACETATE
     Indication: Epilepsy
  3. METOPROLOL TARTRATE [Suspect]
     Active Substance: METOPROLOL TARTRATE
     Indication: Palpitations
     Dosage: 25 MG, BID
  4. DILTIAZEM [Suspect]
     Active Substance: DILTIAZEM
     Indication: Palpitations
     Dosage: 120 MG, QD
  5. MODERNA COVID-19 VACCINE [Concomitant]
     Active Substance: ELASOMERAN

REACTIONS (9)
  - Simple partial seizures [Unknown]
  - Seizure [Unknown]
  - Palpitations [Unknown]
  - Arrhythmia [Not Recovered/Not Resolved]
  - Head discomfort [Unknown]
  - Ear discomfort [Unknown]
  - Drug interaction [Unknown]
  - Aphasia [Unknown]
  - Fatigue [Unknown]

NARRATIVE: CASE EVENT DATE: 20200101
